FAERS Safety Report 5479110-6 (Version None)
Quarter: 2007Q4

REPORT INFORMATION
  Report Type: 
  Country: None (occurrence: None)
  Receive Date: 20071002
  Receipt Date: 20070925
  Transmission Date: 20080405
  Serious: Yes (Hospitalization)
  Sender: FDA-Public Use
  Company Number: 163-21880-07090247

PATIENT
  Age: 82 Year
  Sex: Female

DRUGS (1)
  1. REVLIMID (LEANLIDOMIDE) (5 MILLIGRAM, CAPSULES) [Suspect]
     Indication: MYELODYSPLASTIC SYNDROME
     Dosage: 5 MG, 1 IN 1 D, ORAL
     Route: 048
     Dates: start: 20070101

REACTIONS (5)
  - CYSTITIS [None]
  - HEPATITIS [None]
  - HYPERTENSION [None]
  - PLATELET COUNT DECREASED [None]
  - PNEUMONIA [None]
